FAERS Safety Report 8385710-6 (Version None)
Quarter: 2012Q2

REPORT INFORMATION
  Report Type: 
  Country: None (occurrence: None)
  Receive Date: 20120525
  Receipt Date: 20120515
  Transmission Date: 20120825
  Serious: Yes (Hospitalization, Other)
  Sender: FDA-Public Use
  Company Number: IT-BRISTOL-MYERS SQUIBB COMPANY-16514200

PATIENT
  Age: 64 Year
  Sex: Male

DRUGS (3)
  1. SPRYCEL [Suspect]
     Indication: CHRONIC MYELOID LEUKAEMIA
     Dosage: INTER ON 23FEB12
     Dates: start: 20080122
  2. SPRYCEL [Suspect]
     Indication: NON-HODGKIN'S LYMPHOMA
     Dosage: INTER ON 23FEB12
     Dates: start: 20080122
  3. LAMIVUDINE [Concomitant]
     Dosage: FILM COVERED TABLET
     Route: 048
     Dates: start: 20100917, end: 20120206

REACTIONS (3)
  - NEOPLASM MALIGNANT [None]
  - HEPATITIS B [None]
  - TRANSAMINASES INCREASED [None]
